FAERS Safety Report 5999182-X (Version None)
Quarter: 2008Q4

REPORT INFORMATION
  Report Type: 
  Country: None (occurrence: None)
  Receive Date: 20081215
  Receipt Date: 20081210
  Transmission Date: 20090506
  Serious: Yes (Other)
  Sender: FDA-Public Use
  Company Number: US-BAYER-200833271NA

PATIENT
  Age: 16 Year
  Sex: Female

DRUGS (4)
  1. YAZ [Suspect]
     Indication: DRUG USE FOR UNKNOWN INDICATION
     Route: 048
  2. POTASSIUM CHLORIDE [Concomitant]
  3. CALCIUM [Concomitant]
  4. LIPO 6 [Concomitant]

REACTIONS (5)
  - ANAEMIA [None]
  - CYSTITIS [None]
  - HOT FLUSH [None]
  - IRRITABILITY [None]
  - KIDNEY INFECTION [None]
